FAERS Safety Report 6381946-4 (Version None)
Quarter: 2009Q3

REPORT INFORMATION
  Report Type: 
  Country: None (occurrence: None)
  Receive Date: 20090930
  Receipt Date: 20090909
  Transmission Date: 20100115
  Serious: No
  Sender: FDA-Public Use
  Company Number: BR-ROCHE-656338

PATIENT
  Sex: Male
  Weight: 27 kg

DRUGS (3)
  1. TAMIFLU [Suspect]
     Route: 048
     Dates: start: 20090908
  2. CLAVULIN [Concomitant]
     Indication: SINUSITIS
     Dates: start: 20090908
  3. DIPYRONE [Concomitant]
     Dosage: BEFORE AND AFTER TAKING OSELTAMIVIR
     Route: 048
     Dates: start: 20090908

REACTIONS (2)
  - DYSPHAGIA [None]
  - MEDICATION ERROR [None]
